FAERS Safety Report 21137308 (Version 2)
Quarter: 2022Q3

REPORT INFORMATION
  Report Type: Report from Study
  Country: US (occurrence: US)
  Receive Date: 20220727
  Receipt Date: 20220823
  Transmission Date: 20221027
  Serious: No
  Sender: FDA-Public Use
  Company Number: US-PPDUS-2022ZX000914

PATIENT
  Age: 2 Year
  Sex: Male

DRUGS (2)
  1. FINTEPLA [Suspect]
     Active Substance: FENFLURAMINE
     Indication: Epilepsy
     Dosage: TITRATED TO 2 ML BID
     Route: 048
     Dates: start: 20220224, end: 20220623
  2. FINTEPLA [Suspect]
     Active Substance: FENFLURAMINE
     Dosage: RESTARTED AT 1 ML BID TO TARGET DOSE 2 ML BID
     Route: 048
     Dates: start: 20220727

REACTIONS (2)
  - Gastrointestinal tube insertion [Recovered/Resolved]
  - Off label use [Unknown]

NARRATIVE: CASE EVENT DATE: 20220224
